FAERS Safety Report 4309461-X (Version None)
Quarter: 2004Q1

REPORT INFORMATION
  Report Type: 
  Country: None (occurrence: None)
  Receive Date: 20040301
  Receipt Date: 20040217
  Transmission Date: 20041129
  Serious: Yes (Hospitalization, Other)
  Sender: FDA-Public Use
  Company Number: 2004004613

PATIENT
  Age: 71 Year
  Sex: Female

DRUGS (7)
  1. ATORVASTATIN CALCIUM [Suspect]
     Indication: HYPERCHOLESTEROLAEMIA
     Dosage: 40 MG (DAILY), ORAL
     Route: 048
  2. METFORMIN HCL [Concomitant]
  3. GLYBURIDE [Concomitant]
  4. CELECOXIB (CELECOXIB) [Concomitant]
  5. LEVOTHYROXINE SODIUM [Concomitant]
  6. OXAZEPAM [Concomitant]
  7. ACETAMINOPHEN [Concomitant]

REACTIONS (3)
  - AREFLEXIA [None]
  - ASTHENIA [None]
  - MYOPATHY TOXIC [None]
